FAERS Safety Report 21145034 (Version 1)
Quarter: 2022Q3

REPORT INFORMATION
  Report Type: Spontaneous
  Country: FR (occurrence: FR)
  Receive Date: 20220729
  Receipt Date: 20220729
  Transmission Date: 20221026
  Serious: Yes (Hospitalization, Other)
  Sender: FDA-Public Use
  Company Number: FR-TAKEDA-2022TUS046053

PATIENT
  Age: 31 Year
  Sex: Female

DRUGS (7)
  1. PREDNISONE [Suspect]
     Active Substance: PREDNISONE
     Indication: Crohn^s disease
     Dosage: UNK
     Route: 065
     Dates: start: 20170613, end: 20170908
  2. PREDNISONE [Suspect]
     Active Substance: PREDNISONE
     Dosage: 40 MILLIGRAM, ONCE A DAY
     Route: 048
     Dates: start: 20190120, end: 20190426
  3. PREDNISOLONE [Suspect]
     Active Substance: PREDNISOLONE
     Indication: Crohn^s disease
     Dosage: 30 MILLIGRAM, ONCE A DAY
     Route: 048
     Dates: start: 20170613, end: 20170908
  4. AZATHIOPRINE [Suspect]
     Active Substance: AZATHIOPRINE
     Indication: Crohn^s disease
     Dosage: 100 MILLIGRAM, ONCE A DAY
     Route: 048
     Dates: start: 20150320, end: 20190220
  5. INFLIXIMAB [Suspect]
     Active Substance: INFLIXIMAB
     Indication: Crohn^s disease
     Dosage: 8 WEEKS
     Route: 042
     Dates: start: 20170404, end: 20170908
  6. STELARA [Suspect]
     Active Substance: USTEKINUMAB
     Indication: Crohn^s disease
     Dosage: 90 MILLIGRAM, 8 WEEKS
     Route: 058
     Dates: start: 20180120, end: 20190220
  7. VEDOLIZUMAB [Suspect]
     Active Substance: VEDOLIZUMAB
     Indication: Crohn^s disease
     Dosage: 300 MILLIGRAM, 4 WEEKS
     Route: 042
     Dates: start: 20190220

REACTIONS (2)
  - Crohn^s disease [Recovered/Resolved]
  - Adrenal insufficiency [Recovering/Resolving]
